FAERS Safety Report 5302254-6 (Version None)
Quarter: 2007Q2

REPORT INFORMATION
  Report Type: 
  Country: None (occurrence: None)
  Receive Date: 20070419
  Receipt Date: 20060403
  Transmission Date: 20071010
  Serious: No
  Sender: FDA-Public Use
  Company Number: US-GLAXOSMITHKLINE-A0600112A

PATIENT
  Age: 57 Year
  Sex: Male

DRUGS (2)
  1. ESKALITH [Suspect]
     Dosage: 450MG UNKNOWN
     Route: 048
     Dates: start: 20050901
  2. DIAZEPAM [Concomitant]

REACTIONS (2)
  - AGITATION [None]
  - DRUG INEFFECTIVE [None]
